FAERS Safety Report 10948094 (Version 1)
Quarter: 2015Q1

REPORT INFORMATION
  Report Type: Spontaneous
  Country: US (occurrence: None)
  Receive Date: 20150225
  Receipt Date: 20150225
  Transmission Date: 20150721
  Serious: Yes (Hospitalization)
  Sender: FDA-Public Use
  Company Number: 2014-US003535

PATIENT
  Age: 54 Year
  Sex: Female
  Weight: 123.8 kg

DRUGS (7)
  1. KADIAN (MORPHINE SULFATE) [Concomitant]
  2. METFORMIN [Concomitant]
     Active Substance: METFORMIN HYDROCHLORIDE
  3. FLEXERIL [Concomitant]
     Active Substance: CYCLOBENZAPRINE HYDROCHLORIDE
  4. PRIALT [Suspect]
     Active Substance: ZICONOTIDE ACETATE
     Indication: PAIN
     Route: 037
  5. PRIALT [Suspect]
     Active Substance: ZICONOTIDE ACETATE
     Indication: POST LAMINECTOMY SYNDROME
     Route: 037
  6. JANUVIA (SITAGILPTIN PHOSPHATE) [Concomitant]
  7. PRIALT [Suspect]
     Active Substance: ZICONOTIDE ACETATE
     Indication: BACK PAIN
     Route: 037

REACTIONS (4)
  - Foreign body reaction [None]
  - Cerebrospinal fluid leakage [None]
  - Endotracheal intubation [None]
  - Wound infection [None]

NARRATIVE: CASE EVENT DATE: 20140227
